FAERS Safety Report 25712184 (Version 3)
Quarter: 2025Q4

REPORT INFORMATION
  Report Type: Spontaneous
  Country: US (occurrence: US)
  Receive Date: 20250821
  Receipt Date: 20251216
  Transmission Date: 20260117
  Serious: No
  Sender: ROCHE
  Company Number: US-ROCHE-10000364259

PATIENT
  Sex: Female

DRUGS (2)
  1. ACTEMRA ACTPEN [Suspect]
     Active Substance: TOCILIZUMAB
     Indication: Rheumatoid arthritis
     Dosage: STRENGTH: 162 MG/0.9 M
     Route: 058
  2. ACTEMRA ACTPEN [Suspect]
     Active Substance: TOCILIZUMAB
     Dosage: DOSE: 2
     Route: 058
     Dates: start: 202510

REACTIONS (2)
  - Pain [Recovering/Resolving]
  - Fibromyalgia [Unknown]
